FAERS Safety Report 9004887 (Version 2)
Quarter: 2013Q2

REPORT INFORMATION
  Report Type: Spontaneous
  Country: US (occurrence: None)
  Receive Date: 20120508
  Receipt Date: 20120709
  Transmission Date: 20140414
  Serious: No
  Sender: FDA-Public Use
  Company Number: 2011HGS-003054

PATIENT
  Age: 62 Year
  Sex: Female
  Weight: 105.24 kg

DRUGS (19)
  1. BENLYSTA [Suspect]
     Indication: SYSTEMIC LUPUS ERYTHEMATOSUS
     Dosage: 1 IN 28 D, INTRAVENOUS
     Route: 041
     Dates: start: 20111121
  2. ASPIRIN (ACETYLSALICYLIC) (ACETYLSALICYLIC) [Concomitant]
  3. PREDNISONE (PREDNISONE) (PREDNISONE) [Concomitant]
  4. HYDROXYCHLOROQUINE) (HYDROXYCHLOROQUINE) [Concomitant]
  5. ZOLPIDEM (ZOLPIDEM) (ZOLPIDEM) [Concomitant]
  6. NORCO (VICODIN) (PARACETAMOL, HYDROCODONE BITARTRATE) [Concomitant]
  7. LORAZEPAM (LORAZEPAM) (LORAZEPAM) [Concomitant]
  8. CARBAMAZEPINE (CARBAMAZEPINE) (CARBAMAZEPINE) [Concomitant]
  9. LYRICA (PREGABALIN) (PREGABALIN) [Concomitant]
  10. FERROUS SULFATE (FERROUS SULFATE) (FERROUS SULFATE) [Concomitant]
  11. VENLAFAXINE (VENLAFAXINE) (VENLAFAXINE) [Concomitant]
  12. MELOXICAM (MELOXICAM) (MELOXICAM) [Concomitant]
  13. PLAVIX (CLOPIDOGREL BISULFATE) (CLOPIDOGREL BISULFATE) [Concomitant]
  14. ADVAIR (SERETIDE) FUTICASONE PROPIONATE, SALMETEROL XINAFOATE) [Concomitant]
  15. ALBUTEROL (SALBUTAMOL) (SALBUTAMOL) [Concomitant]
  16. PRILOSEC (OMEPRAZOLE) (OMEPRAZOLE) [Concomitant]
  17. CITRACEL (CALCIUM CITRATE) (CALCIUM CITRATE) [Concomitant]
  18. CARTIA XT (DILTIAZEM HYDROCHLORIDE) (DILTIAZEM HYDROCHLORIDE) [Concomitant]
  19. CARBIDOPA-LEVODOPA (SINEMET) (LEVODOPA, CARBIDOPA) [Concomitant]

REACTIONS (3)
  - Bronchitis [None]
  - Wheezing [None]
  - Cough [None]
